FAERS Safety Report 10828117 (Version 1)
Quarter: 2015Q1

REPORT INFORMATION
  Report Type: Report from Study
  Country: CA (occurrence: CA)
  Receive Date: 20150219
  Receipt Date: 20150219
  Transmission Date: 20150721
  Serious: Yes (Other)
  Sender: FDA-Public Use
  Company Number: CA-AMGEN-CANSL2015013567

PATIENT
  Age: 84 Year
  Sex: Female

DRUGS (2)
  1. CALTRATE                           /00944201/ [Concomitant]
     Dosage: UNK
  2. PROLIA [Suspect]
     Active Substance: DENOSUMAB
     Indication: OSTEOPOROSIS POSTMENOPAUSAL
     Dosage: 60 MG, Q6MO
     Route: 058
     Dates: start: 20140623

REACTIONS (11)
  - Urticaria [Unknown]
  - Presyncope [Unknown]
  - Malaise [Unknown]
  - Blood cholesterol increased [Unknown]
  - Pain [Unknown]
  - Hypertension [Unknown]
  - Pruritus [Unknown]
  - Ear discomfort [Recovered/Resolved]
  - Nausea [Unknown]
  - Gastrooesophageal reflux disease [Unknown]
  - Head discomfort [Unknown]
